FAERS Safety Report 6303238-1 (Version None)
Quarter: 2009Q3

REPORT INFORMATION
  Report Type: 
  Country: None (occurrence: None)
  Receive Date: 20090810
  Receipt Date: 20090226
  Transmission Date: 20100115
  Serious: No
  Sender: FDA-Public Use
  Company Number: A0770711A

PATIENT
  Age: 39 Year
  Sex: Male

DRUGS (3)
  1. PAXIL [Suspect]
     Indication: DEPRESSION
     Dosage: 50MG PER DAY
     Route: 048
     Dates: start: 20040101, end: 20080101
  2. SEROQUEL [Concomitant]
  3. XANAX [Concomitant]

REACTIONS (2)
  - NIGHTMARE [None]
  - WITHDRAWAL SYNDROME [None]
